FAERS Safety Report 22046296 (Version 1)
Quarter: 2023Q1

REPORT INFORMATION
  Report Type: Spontaneous
  Country: US (occurrence: US)
  Receive Date: 20230228
  Receipt Date: 20230228
  Transmission Date: 20230418
  Serious: No
  Sender: FDA-Public Use
  Company Number: US-PAIPHARMA-2022-US-004931

PATIENT
  Age: 25 Year
  Sex: Female
  Weight: 53.07 kg

DRUGS (1)
  1. FLUOXETINE HYDROCHLORIDE [Suspect]
     Active Substance: FLUOXETINE HYDROCHLORIDE
     Indication: Depression
     Dosage: 1.5ML TAPERING DOWN AND CURRENTLY AT 0.2 ML
     Route: 048
     Dates: start: 20210802

REACTIONS (2)
  - Electric shock sensation [Not Recovered/Not Resolved]
  - Disorientation [Not Recovered/Not Resolved]
